FAERS Safety Report 8172846-8 (Version None)
Quarter: 2012Q1

REPORT INFORMATION
  Report Type: 
  Country: None (occurrence: None)
  Receive Date: 20120229
  Receipt Date: 20120229
  Transmission Date: 20120608
  Serious: No
  Sender: FDA-Public Use
  Company Number: None

PATIENT
  Age: 69 Year
  Sex: Male
  Weight: 117.93 kg

DRUGS (1)
  1. TESTIM [Suspect]
     Indication: HYPOGONADISM
     Dosage: 5 GRAMS
     Route: 061
     Dates: start: 20111012, end: 20111221

REACTIONS (2)
  - RASH [None]
  - PRODUCT SUBSTITUTION ISSUE [None]
